FAERS Safety Report 9411789 (Version 8)
Quarter: 2014Q1

REPORT INFORMATION
  Report Type: Spontaneous
  Country: US (occurrence: US)
  Receive Date: 20130722
  Receipt Date: 20140107
  Transmission Date: 20141002
  Serious: Yes (Other)
  Sender: FDA-Public Use
  Company Number: US-PFIZER INC-2013212192

PATIENT
  Age: 71 Year
  Sex: Female
  Weight: 60.8 kg

DRUGS (10)
  1. SUTENT [Suspect]
     Indication: PANCREATIC NEUROENDOCRINE TUMOUR
     Dosage: 37.5 MG (ONE OF 25 MG CAPSULE AND ONE OF 12.5 MG CAPSULE), DAILY
     Route: 048
     Dates: start: 20130706, end: 20130806
  2. SUTENT [Suspect]
     Dosage: 25 MG, DAILY
     Route: 048
     Dates: start: 20130814, end: 20131205
  3. OMEPRAZOLE [Concomitant]
     Dosage: UNK
  4. ZOFRAN [Concomitant]
     Dosage: UNK
  5. BENICAR [Concomitant]
     Indication: HYPERTENSION
     Dosage: 40 MG, UNK
  6. CALCIUM WITH VITAMIN D [Concomitant]
     Dosage: UNK
  7. VITAMIN C [Concomitant]
     Dosage: UNK
  8. COD-LIVER OIL [Concomitant]
     Dosage: UNK
  9. CIPRO [Concomitant]
     Dosage: UNK
  10. TURMERIC [Concomitant]
     Dosage: UNK

REACTIONS (14)
  - Urinary tract infection [Unknown]
  - Anaemia [Unknown]
  - Diarrhoea [Not Recovered/Not Resolved]
  - Dysgeusia [Not Recovered/Not Resolved]
  - Hypertension [Unknown]
  - Platelet count increased [Unknown]
  - Oral pain [Recovered/Resolved]
  - Glossodynia [Recovered/Resolved]
  - Pain in extremity [Unknown]
  - Fatigue [Unknown]
  - Stomatitis [Recovered/Resolved]
  - Dyspnoea [Unknown]
  - White blood cell count decreased [Recovered/Resolved]
  - Tooth disorder [Unknown]
